FAERS Safety Report 20769314 (Version 1)
Quarter: 2022Q2

REPORT INFORMATION
  Report Type: Spontaneous
  Country: CA (occurrence: CA)
  Receive Date: 20220429
  Receipt Date: 20220429
  Transmission Date: 20220721
  Serious: Yes (Life-Threatening, Hospitalization, Other)
  Sender: FDA-Public Use
  Company Number: CA-GLAXOSMITHKLINE-CA2022AMR071055

PATIENT
  Age: 20 Year
  Sex: Female

DRUGS (4)
  1. LAMOTRIGINE [Suspect]
     Active Substance: LAMOTRIGINE
     Indication: Product used for unknown indication
     Dosage: UNK
  2. DOXEPIN [Concomitant]
     Active Substance: DOXEPIN
     Indication: Product used for unknown indication
     Dosage: UNK
  3. LORAZEPAM [Concomitant]
     Active Substance: LORAZEPAM
     Indication: Product used for unknown indication
     Dosage: UNK
  4. ZOPICLONE [Concomitant]
     Active Substance: ZOPICLONE
     Indication: Product used for unknown indication
     Dosage: UNK

REACTIONS (14)
  - Stevens-Johnson syndrome [Recovered/Resolved]
  - Laryngeal oedema [Recovered/Resolved]
  - Blister [Recovered/Resolved]
  - Conjunctivitis [Recovered/Resolved]
  - Endotracheal intubation [Recovered/Resolved]
  - Erythema [Recovered/Resolved]
  - Gastrointestinal tube insertion [Recovered/Resolved]
  - Mastication disorder [Recovered/Resolved]
  - Mucosal haemorrhage [Recovered/Resolved]
  - Mucosal ulceration [Recovered/Resolved]
  - Oedema mucosal [Recovered/Resolved]
  - Oral mucosal exfoliation [Recovered/Resolved]
  - Papule [Recovered/Resolved]
  - Skin plaque [Recovered/Resolved]
